FAERS Safety Report 13490158 (Version 15)
Quarter: 2018Q2

REPORT INFORMATION
  Report Type: Report from Study
  Country: US (occurrence: US)
  Receive Date: 20170427
  Receipt Date: 20180423
  Transmission Date: 20180711
  Serious: Yes (Other)
  Sender: FDA-Public Use
  Company Number: US-JNJFOC-20161127974

PATIENT
  Age: 64 Year
  Sex: Female

DRUGS (28)
  1. IMBRUVICA [Suspect]
     Active Substance: IBRUTINIB
     Indication: CHRONIC LYMPHOCYTIC LEUKAEMIA
     Route: 048
     Dates: start: 20161031, end: 20180117
  2. BIAXIN [Concomitant]
     Active Substance: CLARITHROMYCIN
     Dosage: (MONDAY AND THURSDAY)
  3. OSTEO BI-FLEX [Concomitant]
     Active Substance: CHONDROITIN SULFATE A\GLUCOSAMINE
  4. OCUVITE [Concomitant]
     Active Substance: VITAMINS
  5. MAGNESIUM CITRATE. [Concomitant]
     Active Substance: MAGNESIUM CITRATE
     Dosage: Q PM
  6. VITAMIN D3 [Concomitant]
     Active Substance: CHOLECALCIFEROL
  7. TYLENOL [Concomitant]
     Active Substance: ACETAMINOPHEN
  8. SOMA [Concomitant]
     Active Substance: CARISOPRODOL
  9. ACYCLOVIR. [Concomitant]
     Active Substance: ACYCLOVIR
  10. AMBIEN [Concomitant]
     Active Substance: ZOLPIDEM TARTRATE
     Dosage: Q PM
  11. VITAMIN B COMPLEX [Concomitant]
     Active Substance: CYANOCOBALAMIN\DEXPANTHENOL\NIACINAMIDE\PYRIDOXINE HYDROCHLORIDE\RIBOFLAVIN 5^-PHOSPHATE SODIUM\THIAMINE HYDROCHLORIDE\VITAMIN B COMPLEX
  12. FOLIC ACID. [Concomitant]
     Active Substance: FOLIC ACID
  13. CALCIUM [Concomitant]
     Active Substance: CALCIUM
  14. FISH OIL [Concomitant]
     Active Substance: FISH OIL
  15. ALLOPURINOL. [Concomitant]
     Active Substance: ALLOPURINOL
     Route: 048
  16. PREMPRO [Concomitant]
     Active Substance: ESTROGENS, CONJUGATED\MEDROXYPROGESTERONE ACETATE
  17. NEURONTIN [Concomitant]
     Active Substance: GABAPENTIN
  18. VITAMIN C [Concomitant]
     Active Substance: ASCORBIC ACID
  19. MELATONIN [Concomitant]
     Active Substance: MELATONIN
     Dosage: Q PM
  20. BIOTIN [Concomitant]
     Active Substance: BIOTIN
  21. TETRYZOLINE HYDROCHLORIDE [Concomitant]
     Active Substance: TETRAHYDROZOLINE HYDROCHLORIDE
  22. VITAMIN D2 [Concomitant]
     Active Substance: ERGOCALCIFEROL
  23. COENZYME Q10 [Concomitant]
     Active Substance: UBIDECARENONE
     Dosage: Q AM
  24. XYZAL [Concomitant]
     Active Substance: LEVOCETIRIZINE DIHYDROCHLORIDE
  25. CENTRUM SILVER [Concomitant]
     Active Substance: MINERALS\VITAMINS
  26. ELAVIL [Concomitant]
     Active Substance: AMITRIPTYLINE HYDROCHLORIDE
     Dosage: Q PM
  27. PREVACID [Concomitant]
     Active Substance: LANSOPRAZOLE
  28. LIPITOR [Concomitant]
     Active Substance: ATORVASTATIN CALCIUM

REACTIONS (35)
  - Precancerous skin lesion [Unknown]
  - Sciatica [Unknown]
  - T-lymphocyte count increased [Unknown]
  - Contusion [Not Recovered/Not Resolved]
  - Stomatitis [Recovering/Resolving]
  - Dry skin [Not Recovered/Not Resolved]
  - Dry mouth [Not Recovered/Not Resolved]
  - Back pain [Not Recovered/Not Resolved]
  - Genital herpes zoster [Not Recovered/Not Resolved]
  - White blood cell count increased [Recovering/Resolving]
  - Solar lentigo [Recovering/Resolving]
  - Cytomegalovirus infection [Unknown]
  - Intervertebral disc protrusion [Not Recovered/Not Resolved]
  - Skin burning sensation [Unknown]
  - Haematocrit increased [Unknown]
  - Ligament sprain [Unknown]
  - Protein total decreased [Unknown]
  - Erythema nodosum [Unknown]
  - Animal scratch [Not Recovered/Not Resolved]
  - Neutrophil count decreased [Not Recovered/Not Resolved]
  - Drug ineffective [Unknown]
  - Blood count abnormal [Not Recovered/Not Resolved]
  - Mass [Unknown]
  - Fall [Unknown]
  - Mean cell volume increased [Unknown]
  - Lymphocyte count decreased [Not Recovered/Not Resolved]
  - Oral mucosal blistering [Recovering/Resolving]
  - Peripheral swelling [Unknown]
  - Muscle tightness [Not Recovered/Not Resolved]
  - Mean cell haemoglobin increased [Unknown]
  - Skin abrasion [Unknown]
  - Vaginal haemorrhage [Unknown]
  - Fatigue [Recovering/Resolving]
  - Muscle spasms [Not Recovered/Not Resolved]
  - Viral infection [Unknown]

NARRATIVE: CASE EVENT DATE: 2016
